FAERS Safety Report 7575598-5 (Version None)
Quarter: 2011Q2

REPORT INFORMATION
  Report Type: 
  Country: None (occurrence: None)
  Receive Date: 20110627
  Receipt Date: 20110615
  Transmission Date: 20111010
  Serious: Yes (Disabling)
  Sender: FDA-Public Use
  Company Number: DE-UCBSA-032181

PATIENT
  Age: 47 Year
  Sex: Male
  Weight: 87 kg

DRUGS (7)
  1. AMLODIPINE [Concomitant]
     Indication: HYPERTENSION
  2. MARCUMAR [Concomitant]
     Indication: PULMONARY EMBOLISM
     Dosage: IF NEEDED
     Dates: start: 20100301
  3. PREDNISOLONE [Concomitant]
     Indication: RHEUMATOID ARTHRITIS
     Dates: start: 20100630
  4. HYDROCHLOROTHIAZIDE-BETA [Concomitant]
     Indication: HYPERTENSION
  5. CIMZIA [Suspect]
     Indication: RHEUMATOID ARTHRITIS
     Dosage: NO OF DOSES RECEIVED :18
     Route: 058
     Dates: start: 20101111
  6. METHOTREXATE [Concomitant]
     Indication: RHEUMATOID ARTHRITIS
     Dosage: QS
     Dates: start: 20090429
  7. ALENDRONATE SODIUM [Concomitant]
     Indication: OSTEOPOROSIS
     Route: 048
     Dates: start: 20100412, end: 20110502

REACTIONS (1)
  - BONE INFARCTION [None]
